FAERS Safety Report 8777549 (Version 1)
Quarter: 2012Q4

REPORT INFORMATION
  Report Type: 
  Country: ZA (occurrence: ZA)
  Receive Date: 20120907
  Receipt Date: 20120907
  Transmission Date: 20130627
  Serious: Yes (Hospitalization)
  Sender: FDA-Public Use
  Company Number: ZA-ELI_LILLY_AND_COMPANY-ZA201209000568

PATIENT
  Sex: Male

DRUGS (5)
  1. HUMALOG 25% LISPRO, 75% NPL [Suspect]
     Indication: DIABETES MELLITUS
     Dosage: 20 u, each morning
     Dates: start: 201206
  2. HUMALOG 25% LISPRO, 75% NPL [Suspect]
     Dosage: 10 u, each evening
     Route: 058
     Dates: start: 201206
  3. TEGRETOL [Concomitant]
     Dosage: 200 mg, unknown
     Route: 048
     Dates: start: 201207
  4. CELEBREX [Concomitant]
     Indication: PAIN
     Dosage: 1 DF, qd
     Dates: start: 201207
  5. LYRICA [Concomitant]
     Indication: NEUROPATHY PERIPHERAL
     Dosage: 75 mg, each evening
     Route: 048
     Dates: start: 201207

REACTIONS (2)
  - Musculoskeletal pain [Unknown]
  - Osteoarthritis [Unknown]
